FAERS Safety Report 5771377-X (Version None)
Quarter: 2008Q2

REPORT INFORMATION
  Report Type: 
  Country: None (occurrence: None)
  Receive Date: 20080613
  Receipt Date: 20080609
  Transmission Date: 20081010
  Serious: Yes (Other)
  Sender: FDA-Public Use
  Company Number: DE-JNJFOC-20080601880

PATIENT
  Age: 33 Year
  Sex: Female

DRUGS (1)
  1. TOPAMAX MIGRANE [Suspect]
     Indication: DRUG USE FOR UNKNOWN INDICATION
     Route: 048

REACTIONS (6)
  - ALANINE AMINOTRANSFERASE INCREASED [None]
  - ASCITES [None]
  - OEDEMA [None]
  - PLEURAL EFFUSION [None]
  - WEIGHT DECREASED [None]
  - WEIGHT INCREASED [None]
